FAERS Safety Report 9818969 (Version 1)
Quarter: 2014Q1

REPORT INFORMATION
  Report Type: Spontaneous
  Country: US (occurrence: None)
  Receive Date: 20140114
  Receipt Date: 20140114
  Transmission Date: 20141002
  Serious: Yes (Life-Threatening)
  Sender: FDA-Public Use
  Company Number: None

PATIENT
  Age: 37 Year
  Sex: Male

DRUGS (1)
  1. ADACEL [Suspect]
     Indication: IMMUNISATION
     Dosage: 0.5 CC ONCE INTRAMUSCULAR
     Route: 030
     Dates: start: 20140103, end: 20140103

REACTIONS (1)
  - Hypersensitivity [None]
